FAERS Safety Report 18961549 (Version 1)
Quarter: 2021Q1

REPORT INFORMATION
  Report Type: Spontaneous
  Country: IR (occurrence: IR)
  Receive Date: 20210302
  Receipt Date: 20210302
  Transmission Date: 20210420
  Serious: Yes (Other)
  Sender: FDA-Public Use
  Company Number: IR-INSUD PHARMA-2102IR00193

PATIENT

DRUGS (2)
  1. TESTOSTERONE. [Suspect]
     Active Substance: TESTOSTERONE
     Indication: MUSCLE BUILDING THERAPY
     Dosage: 250 MILLIGRAM TWICE PER WEEK FOR 2 YEARS
     Route: 030
  2. HUMAN GROWTH HORMONE, RECOMBINANT [Suspect]
     Active Substance: SOMATROPIN
     Indication: MUSCLE BUILDING THERAPY
     Dosage: 20 MG/DAY FOR 2 YEARS
     Route: 065

REACTIONS (7)
  - Dyspnoea [Unknown]
  - Aortic dissection [Unknown]
  - Syncope [Unknown]
  - Hyperhidrosis [Unknown]
  - Aortic valve incompetence [Unknown]
  - Visual impairment [Unknown]
  - Drug abuse [Unknown]
